FAERS Safety Report 16213652 (Version 1)
Quarter: 2019Q2

REPORT INFORMATION
  Report Type: Spontaneous
  Country: DK (occurrence: DK)
  Receive Date: 20190418
  Receipt Date: 20190418
  Transmission Date: 20190711
  Serious: Yes (Other)
  Sender: FDA-Public Use
  Company Number: PHHY2019DK085758

PATIENT
  Age: 44 Year
  Sex: Male

DRUGS (2)
  1. SEROQUEL [Suspect]
     Active Substance: QUETIAPINE FUMARATE
     Indication: MENTAL DISORDER
     Dosage: UNK,DOSIS: TAGES PN 300-500 MG.
     Route: 048
  2. OLANZAPINE. [Suspect]
     Active Substance: OLANZAPINE
     Indication: SEDATIVE THERAPY
     Dosage: UNK,DOSIS: TAGES PN 300-500 MG.
     Route: 048

REACTIONS (2)
  - Infection susceptibility increased [Unknown]
  - Granulomatosis with polyangiitis [Unknown]
